FAERS Safety Report 14524946 (Version 1)
Quarter: 2018Q1

REPORT INFORMATION
  Report Type: Spontaneous
  Country: FR (occurrence: FR)
  Receive Date: 20180213
  Receipt Date: 20180213
  Transmission Date: 20180509
  Serious: Yes (Hospitalization)
  Sender: FDA-Public Use
  Company Number: PHHY2017FR040176

PATIENT
  Age: 59 Year
  Sex: Male
  Weight: 64 kg

DRUGS (4)
  1. CERTICAN [Suspect]
     Active Substance: EVEROLIMUS
     Dosage: UNK
     Route: 048
  2. MYFORTIC [Concomitant]
     Active Substance: MYCOPHENOLATE SODIUM
     Indication: PRODUCT USED FOR UNKNOWN INDICATION
     Dosage: 360 MG, BID
     Route: 065
     Dates: start: 20170105
  3. CERTICAN [Suspect]
     Active Substance: EVEROLIMUS
     Indication: PROPHYLAXIS AGAINST TRANSPLANT REJECTION
     Dosage: 0.75 MG, BID
     Route: 048
     Dates: start: 20170105, end: 20170116
  4. CERTICAN [Suspect]
     Active Substance: EVEROLIMUS
     Dosage: 1 MG, BID
     Route: 048
     Dates: start: 20170116, end: 20170220

REACTIONS (2)
  - Nephrotic syndrome [Recovered/Resolved]
  - Proteinuria [Recovered/Resolved]

NARRATIVE: CASE EVENT DATE: 20170215
